FAERS Safety Report 15335406 (Version 1)
Quarter: 2018Q3

REPORT INFORMATION
  Report Type: Spontaneous
  Country: US (occurrence: US)
  Receive Date: 20180827
  Receipt Date: 20180827
  Transmission Date: 20181010
  Serious: Yes (Other)
  Sender: FDA-Public Use
  Company Number: None

PATIENT
  Age: 71 Year
  Sex: Male

DRUGS (2)
  1. OLD SPICE HIGH ENDURANCE PURE SPORT (ALUMINUM ZIRCONIUM TRICHLOROHYDREX GLY) [Suspect]
     Active Substance: ALUMINUM ZIRCONIUM TRICHLOROHYDREX GLY
     Route: 061
  2. OLD SPICE RED ZONE COLLECTION SWAGGER [Suspect]
     Active Substance: ALUMINUM ZIRCONIUM OCTACHLOROHYDREX GLY\ALUMINUM ZIRCONIUM TRICHLOROHYDREX GLY
     Route: 061

REACTIONS (5)
  - Lip swelling [None]
  - Swelling face [None]
  - Pruritus generalised [None]
  - Eye swelling [None]
  - Urticaria [None]

NARRATIVE: CASE EVENT DATE: 2017
